FAERS Safety Report 20165492 (Version 2)
Quarter: 2022Q1

REPORT INFORMATION
  Report Type: Report from Study
  Country: CA (occurrence: CA)
  Receive Date: 20211209
  Receipt Date: 20220104
  Transmission Date: 20220423
  Serious: Yes (Hospitalization, Other)
  Sender: FDA-Public Use
  Company Number: CA-NOVARTISPH-NVSC2021CA244928

PATIENT
  Age: 31 Year
  Sex: Female

DRUGS (12)
  1. GLYCOPYRROLATE [Suspect]
     Active Substance: GLYCOPYRROLATE
     Indication: Asthma
     Dosage: 1 DF, QD
     Route: 048
  2. SYMBICORT [Concomitant]
     Active Substance: BUDESONIDE\FORMOTEROL FUMARATE DIHYDRATE
     Indication: Product used for unknown indication
     Dosage: UNK
     Route: 065
  3. SPIRIVA [Concomitant]
     Active Substance: TIOTROPIUM BROMIDE MONOHYDRATE
     Indication: Product used for unknown indication
     Dosage: UNK
     Route: 065
  4. VENTOLIN [Concomitant]
     Active Substance: ALBUTEROL SULFATE
     Indication: Product used for unknown indication
     Dosage: UNK
     Route: 065
  5. PREDNISONE [Concomitant]
     Active Substance: PREDNISONE
     Indication: Product used for unknown indication
     Dosage: UNK, PRN
     Route: 065
  6. ZENHALE [Concomitant]
     Active Substance: FORMOTEROL FUMARATE\MOMETASONE FUROATE
     Indication: Product used for unknown indication
     Dosage: UNK
     Route: 065
  7. NASONEX [Concomitant]
     Active Substance: MOMETASONE FUROATE
     Indication: Product used for unknown indication
     Dosage: UNK
     Route: 065
  8. LITHIUM [Concomitant]
     Active Substance: LITHIUM
     Indication: Product used for unknown indication
     Dosage: UNK
     Route: 065
  9. LYRICA [Concomitant]
     Active Substance: PREGABALIN
     Indication: Product used for unknown indication
     Dosage: UNK
     Route: 065
  10. BENZAC [Concomitant]
     Active Substance: SALICYLIC ACID
     Indication: Product used for unknown indication
     Dosage: UNK
     Route: 065
  11. AERIUS [Concomitant]
     Indication: Product used for unknown indication
     Dosage: UNK
     Route: 065
  12. BENADRYL [Concomitant]
     Active Substance: DIPHENHYDRAMINE HYDROCHLORIDE
     Indication: Product used for unknown indication
     Dosage: UNK
     Route: 065

REACTIONS (23)
  - Asthma [Unknown]
  - Bipolar disorder [Unknown]
  - Blood immunoglobulin E increased [Unknown]
  - Red blood cell count increased [Unknown]
  - Mean cell volume decreased [Unknown]
  - Mean cell haemoglobin decreased [Unknown]
  - Rhinorrhoea [Unknown]
  - Nasal congestion [Unknown]
  - Eye pruritus [Unknown]
  - Pruritus [Unknown]
  - Dyspnoea [Unknown]
  - Urticaria [Unknown]
  - Eczema [Unknown]
  - Sneezing [Unknown]
  - Obstructive airways disorder [Unknown]
  - Pulmonary mass [Unknown]
  - Sleep apnoea syndrome [Unknown]
  - Anxiety [Unknown]
  - Nasal inflammation [Unknown]
  - Erythema [Unknown]
  - Rash erythematous [Unknown]
  - Middle insomnia [Unknown]
  - Hypersensitivity [Unknown]

NARRATIVE: CASE EVENT DATE: 20210210
